FAERS Safety Report 10800968 (Version 2)
Quarter: 2015Q1

REPORT INFORMATION
  Report Type: Spontaneous
  Country: US (occurrence: US)
  Receive Date: 20150216
  Receipt Date: 20150216
  Transmission Date: 20150721
  Serious: No
  Sender: FDA-Public Use
  Company Number: US-ALLERGAN-1421698US

PATIENT
  Sex: Female

DRUGS (2)
  1. REFRESH CLASSIC [Concomitant]
     Active Substance: POLYVINYL ALCOHOL\POVIDONE
     Indication: DRY EYE
  2. RESTASIS [Suspect]
     Active Substance: CYCLOSPORINE
     Indication: DRY EYE
     Dosage: 2 GTT, BID
     Route: 047
     Dates: start: 201409

REACTIONS (4)
  - Incorrect product storage [Unknown]
  - Lacrimation increased [Unknown]
  - Wrong technique in drug usage process [Unknown]
  - Multiple use of single-use product [Unknown]
